FAERS Safety Report 6793608-X (Version None)
Quarter: 2010Q2

REPORT INFORMATION
  Report Type: 
  Country: None (occurrence: None)
  Receive Date: 20100624
  Receipt Date: 20090114
  Transmission Date: 20101027
  Serious: No
  Sender: FDA-Public Use
  Company Number: US-PFIZER INC-2008094649

PATIENT
  Sex: Female

DRUGS (7)
  1. TRIAZOLAM [Suspect]
     Indication: INSOMNIA
  2. LORAZEPAM [Concomitant]
     Route: 048
  3. CELEXA [Concomitant]
     Route: 048
  4. TRAMADOL HCL [Concomitant]
     Route: 048
  5. SOMA [Concomitant]
     Route: 048
  6. MORPHINE [Concomitant]
     Route: 048
  7. DILAUDID [Concomitant]
     Route: 048

REACTIONS (1)
  - DRUG INEFFECTIVE [None]
